FAERS Safety Report 18861461 (Version 3)
Quarter: 2021Q1

REPORT INFORMATION
  Report Type: Spontaneous
  Country: FR (occurrence: FR)
  Receive Date: 20210209
  Receipt Date: 20210213
  Transmission Date: 20210420
  Serious: Yes (Hospitalization, Disabling, Other)
  Sender: FDA-Public Use
  Company Number: FR-JNJFOC-20210202995

PATIENT
  Age: 57 Year
  Sex: Male
  Weight: 80 kg

DRUGS (1)
  1. XARELTO [Suspect]
     Active Substance: RIVAROXABAN
     Indication: ARRHYTHMIA
     Dosage: 20 MG
     Route: 048
     Dates: start: 20171013

REACTIONS (21)
  - Hemiplegia [Not Recovered/Not Resolved]
  - Headache [Unknown]
  - Atrial fibrillation [Not Recovered/Not Resolved]
  - Cerebrovascular accident [Unknown]
  - Loss of personal independence in daily activities [Unknown]
  - Formication [Unknown]
  - Distractibility [Unknown]
  - Fatigue [Unknown]
  - Disability [Unknown]
  - Muscle spasticity [Unknown]
  - Cerebral haematoma [Unknown]
  - Depressed mood [Unknown]
  - Haemorrhagic stroke [Unknown]
  - Frustration tolerance decreased [Unknown]
  - Visual impairment [Unknown]
  - Neurologic neglect syndrome [Unknown]
  - Fall [Unknown]
  - Pain in extremity [Unknown]
  - Gait disturbance [Recovering/Resolving]
  - Memory impairment [Unknown]
  - Headache [Unknown]

NARRATIVE: CASE EVENT DATE: 201802
